FAERS Safety Report 19221457 (Version 2)
Quarter: 2021Q2

REPORT INFORMATION
  Report Type: Spontaneous
  Country: US (occurrence: US)
  Receive Date: 20210506
  Receipt Date: 20210513
  Transmission Date: 20210717
  Serious: Yes (Life-Threatening, Other)
  Sender: FDA-Public Use
  Company Number: US-PFIZER INC-2021498459

PATIENT
  Age: 1 Hour
  Sex: Male
  Weight: 3.42 kg

DRUGS (4)
  1. PROPANOLOL HCL [Suspect]
     Active Substance: PROPRANOLOL HYDROCHLORIDE
     Dosage: 40 MG, EVERY SIX HOURS
     Route: 064
  2. PROPANOLOL HCL [Suspect]
     Active Substance: PROPRANOLOL HYDROCHLORIDE
     Dosage: 60 MG, EVERY SIX HOURS
     Route: 064
  3. PROPANOLOL HCL [Suspect]
     Active Substance: PROPRANOLOL HYDROCHLORIDE
     Dosage: 3 MG, ONE HOUR BEFORE THE OPERATION
     Route: 064
  4. PROPANOLOL HCL [Suspect]
     Active Substance: PROPRANOLOL HYDROCHLORIDE
     Dosage: 60 MG, SIX HOURS BEFORE SURGERY
     Route: 064

REACTIONS (4)
  - Hypoglycaemia neonatal [Unknown]
  - Maternal exposure during pregnancy [Unknown]
  - Infantile apnoea [Unknown]
  - Neonatal respiratory depression [Unknown]
